APPROVED DRUG PRODUCT: FLUCYTOSINE
Active Ingredient: FLUCYTOSINE
Strength: 500MG
Dosage Form/Route: CAPSULE;ORAL
Application: A207536 | Product #002
Applicant: STRIDES PHARMA GLOBAL PTE LTD
Approved: Jun 18, 2018 | RLD: No | RS: No | Type: DISCN